FAERS Safety Report 19352505 (Version 1)
Quarter: 2021Q2

REPORT INFORMATION
  Report Type: Spontaneous
  Country: US (occurrence: US)
  Receive Date: 20210531
  Receipt Date: 20210531
  Transmission Date: 20210717
  Serious: No
  Sender: FDA-Public Use
  Company Number: US-JNJFOC-20210557469

PATIENT
  Age: 34 Year
  Sex: Female
  Weight: 55.39 kg

DRUGS (3)
  1. STELARA [Suspect]
     Active Substance: USTEKINUMAB
     Indication: COLITIS
  2. FOLIC ACID. [Concomitant]
     Active Substance: FOLIC ACID
  3. STELARA [Suspect]
     Active Substance: USTEKINUMAB
     Indication: CROHN^S DISEASE
     Route: 058
     Dates: start: 20191028

REACTIONS (1)
  - Exposure during pregnancy [Not Recovered/Not Resolved]
